FAERS Safety Report 24291860 (Version 2)
Quarter: 2024Q4

REPORT INFORMATION
  Report Type: Spontaneous
  Country: JP (occurrence: JP)
  Receive Date: 20240906
  Receipt Date: 20241111
  Transmission Date: 20250114
  Serious: Yes (Hospitalization)
  Sender: ALEXION PHARMACEUTICALS
  Company Number: 2024A199091

PATIENT
  Age: 7 Decade

DRUGS (4)
  1. FASENRA [Suspect]
     Active Substance: BENRALIZUMAB
     Dosage: DOSE UNKNOWN
  2. FASENRA [Suspect]
     Active Substance: BENRALIZUMAB
     Dosage: DOSE UNKNOWN
  3. FASENRA [Suspect]
     Active Substance: BENRALIZUMAB
     Dosage: DOSE UNKNOWN
  4. FASENRA [Suspect]
     Active Substance: BENRALIZUMAB
     Dosage: DOSE UNKNOWN

REACTIONS (1)
  - Road traffic accident [Recovered/Resolved]
